FAERS Safety Report 7687976-4 (Version None)
Quarter: 2011Q3

REPORT INFORMATION
  Report Type: 
  Country: None (occurrence: None)
  Receive Date: 20110817
  Receipt Date: 20100518
  Transmission Date: 20111222
  Serious: Yes (Other)
  Sender: FDA-Public Use
  Company Number: US-PFIZER INC-2010063157

PATIENT
  Sex: Female
  Weight: 90.7 kg

DRUGS (4)
  1. LYRICA [Suspect]
     Dosage: 450 MG, 3X/DAY
     Route: 048
     Dates: start: 20080825
  2. HYDROCODONE [Concomitant]
     Dosage: UNK
  3. LYRICA [Suspect]
     Indication: PAIN
     Dosage: 450 MG, 3X/DAY
     Route: 048
     Dates: start: 20080819, end: 20080821
  4. LYRICA [Suspect]
     Dosage: 300 MG, 3X/DAY
     Route: 048
     Dates: start: 20080822, end: 20080824

REACTIONS (6)
  - SWELLING FACE [None]
  - OEDEMA PERIPHERAL [None]
  - DEPRESSION [None]
  - FATIGUE [None]
  - POOR QUALITY SLEEP [None]
  - WEIGHT INCREASED [None]
